FAERS Safety Report 9458405 (Version 1)
Quarter: 2013Q3

REPORT INFORMATION
  Report Type: Spontaneous
  Country: US (occurrence: US)
  Receive Date: 20130814
  Receipt Date: 20130814
  Transmission Date: 20140515
  Serious: Yes (Hospitalization)
  Sender: FDA-Public Use
  Company Number: US-ASTRAZENECA-2013SE61347

PATIENT
  Age: 19661 Day
  Sex: Female

DRUGS (12)
  1. ENTOCORT [Suspect]
     Indication: CROHN^S DISEASE
     Route: 048
  2. PRILOSEC [Suspect]
     Indication: DYSPEPSIA
     Route: 048
  3. PRILOSEC [Suspect]
     Indication: GASTROOESOPHAGEAL REFLUX PROPHYLAXIS
     Route: 048
  4. HUMIRA [Suspect]
     Indication: CROHN^S DISEASE
     Route: 058
     Dates: start: 20130422
  5. DIOVAN [Concomitant]
     Indication: HYPERTENSION
  6. PREDNISONE [Concomitant]
     Dosage: 40 MG, STARTED AFTER 27-MAY-2013, TAPER DOSE WEEKLY
  7. PREDNISONE [Concomitant]
     Dosage: 15 MG, PRIOR TO 27-MAY-2013
  8. PREDNISONE [Concomitant]
     Dates: start: 20130620
  9. PERCOCET [Concomitant]
     Indication: SPINAL PAIN
  10. PERCOCET [Concomitant]
     Indication: MUSCULOSKELETAL CHEST PAIN
  11. XANAX [Concomitant]
     Indication: ANXIETY
     Dosage: AUTHORISED UPTO 2 MG, 4 DAILY, USUALLY TAKES 2 DAILY
  12. FLONASE [Concomitant]
     Indication: CHRONIC SINUSITIS
     Dosage: 2 SPRAYS EACH NOSTRIL DAILY
     Route: 045

REACTIONS (9)
  - Gastrointestinal stenosis [Unknown]
  - Vomiting projectile [Recovered/Resolved]
  - Abdominal distension [Recovered/Resolved]
  - Fluid retention [Unknown]
  - Flatulence [Unknown]
  - Fatigue [Not Recovered/Not Resolved]
  - Fatigue [Not Recovered/Not Resolved]
  - Influenza like illness [Unknown]
  - Adverse drug reaction [Unknown]
